FAERS Safety Report 9476560 (Version 1)
Quarter: 2013Q3

REPORT INFORMATION
  Report Type: Spontaneous
  Country: US (occurrence: US)
  Receive Date: 20130826
  Receipt Date: 20130826
  Transmission Date: 20140515
  Serious: Yes (Hospitalization)
  Sender: FDA-Public Use
  Company Number: US-BAYER-2013-101952

PATIENT
  Age: 33 Year
  Sex: Female
  Weight: 76.19 kg

DRUGS (8)
  1. BEYAZ [Suspect]
  2. YAZ [Suspect]
  3. YASMIN [Suspect]
  4. CEPHALEXIN [Concomitant]
     Dosage: 500 MG, UNK
     Dates: start: 20130215
  5. DIAZEPAM [Concomitant]
     Dosage: 5 MG, UNK
     Dates: start: 20130220
  6. ASCORBIC ACID [Concomitant]
  7. CIPROFLOXACIN [Concomitant]
  8. CYCLOBENZAPRINE [Concomitant]

REACTIONS (1)
  - Pulmonary embolism [None]
